FAERS Safety Report 5668596-X (Version None)
Quarter: 2008Q1

REPORT INFORMATION
  Report Type: 
  Country: None (occurrence: None)
  Receive Date: 20080315
  Receipt Date: 20080226
  Transmission Date: 20080703
  Serious: No
  Sender: FDA-Public Use
  Company Number: US-ABBOTT-08P-163-0440528-00

PATIENT
  Sex: Female

DRUGS (2)
  1. HUMIRA [Suspect]
     Indication: PSORIASIS
     Route: 058
     Dates: start: 20080101
  2. HUMIRA [Suspect]
     Route: 058

REACTIONS (5)
  - BRONCHITIS [None]
  - FEELING HOT [None]
  - FLUSHING [None]
  - PRURITUS [None]
  - UPPER RESPIRATORY TRACT INFECTION [None]
